FAERS Safety Report 5673101-8 (Version None)
Quarter: 2008Q1

REPORT INFORMATION
  Report Type: 
  Country: None (occurrence: None)
  Receive Date: 20080317
  Receipt Date: 20080303
  Transmission Date: 20080703
  Serious: Yes (Hospitalization)
  Sender: FDA-Public Use
  Company Number: CIP08000277

PATIENT
  Age: 81 Year
  Sex: Female

DRUGS (8)
  1. RISEDRONATE SODIUM [Suspect]
     Indication: OSTEOPOROSIS
     Dosage: 2.5 MG DAILY, ORAL
     Route: 048
     Dates: end: 20080208
  2. RHEUMATREX [Suspect]
     Indication: RHEUMATOID ARTHRITIS
     Dosage: ORAL
     Route: 048
  3. PREDNISOLONE [Suspect]
     Indication: RHEUMATOID ARTHRITIS
     Dosage: ORAL
     Route: 048
  4. CORTICOSTEROIDS [Concomitant]
  5. MOBIC [Concomitant]
  6. LANSOPRAZOLE [Concomitant]
  7. VIT K CAP [Concomitant]
  8. ASPARA-CA (ASPARTATE CALCIUM) [Concomitant]

REACTIONS (5)
  - CONDITION AGGRAVATED [None]
  - OSTEOLYSIS [None]
  - OSTEOMYELITIS [None]
  - RHEUMATOID ARTHRITIS [None]
  - SKIN ULCER [None]
